FAERS Safety Report 13772194 (Version 1)
Quarter: 2017Q3

REPORT INFORMATION
  Report Type: Spontaneous
  Country: AT (occurrence: AT)
  Receive Date: 20170720
  Receipt Date: 20170720
  Transmission Date: 20171127
  Serious: Yes (Other)
  Sender: FDA-Public Use
  Company Number: AT-TEVA-787218ISR

PATIENT
  Age: 76 Year
  Sex: Female

DRUGS (37)
  1. PRAXITEN [Concomitant]
     Active Substance: OXAZEPAM
     Dates: start: 20170317, end: 20170326
  2. RAMIPRIL HCT [Concomitant]
     Active Substance: HYDROCHLOROTHIAZIDE\RAMIPRIL
     Dosage: 5/25MG
     Dates: start: 20170118
  3. LAMOTRIGINE. [Suspect]
     Active Substance: LAMOTRIGINE
     Dates: start: 2016, end: 20161215
  4. CYMBALTA [Concomitant]
     Active Substance: DULOXETINE HYDROCHLORIDE
     Dates: start: 20161231, end: 20170116
  5. CYMBALTA [Concomitant]
     Active Substance: DULOXETINE HYDROCHLORIDE
  6. CONCOR [Concomitant]
     Active Substance: BISOPROLOL FUMARATE
     Dates: start: 20170118, end: 20170118
  7. RAMIPRIL. [Concomitant]
     Active Substance: RAMIPRIL
     Dates: start: 20170218, end: 20170302
  8. UNASYN [Suspect]
     Active Substance: AMPICILLIN SODIUM\SULBACTAM SODIUM
     Route: 042
     Dates: start: 20170119, end: 20170119
  9. OLEOVIT D3 [Concomitant]
     Active Substance: CHOLECALCIFEROL
     Dosage: 4 GTT DAILY;
     Dates: start: 2016, end: 20170312
  10. PRAXITEN [Concomitant]
     Active Substance: OXAZEPAM
     Dates: start: 20170113, end: 20170312
  11. CYMBALTA [Concomitant]
     Active Substance: DULOXETINE HYDROCHLORIDE
     Dates: start: 20170216
  12. PRAXITEN [Concomitant]
     Active Substance: OXAZEPAM
     Dates: start: 20170102, end: 20170102
  13. PRAXITEN [Concomitant]
     Active Substance: OXAZEPAM
     Dates: start: 20170112, end: 20170112
  14. OCULOTECT [Concomitant]
     Dates: start: 20170105
  15. CONCOR [Concomitant]
     Active Substance: BISOPROLOL FUMARATE
     Dates: start: 20170119
  16. RAMIPRIL. [Concomitant]
     Active Substance: RAMIPRIL
     Dates: start: 20170127, end: 20170217
  17. LAMOTRIGINE. [Suspect]
     Active Substance: LAMOTRIGINE
     Dates: start: 20161216, end: 20170206
  18. UNASYN [Suspect]
     Active Substance: AMPICILLIN SODIUM\SULBACTAM SODIUM
     Route: 042
     Dates: start: 20170109, end: 20170110
  19. UNASYN [Suspect]
     Active Substance: AMPICILLIN SODIUM\SULBACTAM SODIUM
     Route: 042
     Dates: start: 20170120, end: 20170202
  20. UNASYN [Suspect]
     Active Substance: AMPICILLIN SODIUM\SULBACTAM SODIUM
     Route: 042
     Dates: start: 20170203, end: 20170203
  21. NEUROMULTIVIT [Concomitant]
     Active Substance: CYANOCOBALAMIN\PYRIDOXINE\THIAMINE
     Dates: start: 2016
  22. PRAXITEN [Concomitant]
     Active Substance: OXAZEPAM
     Dates: start: 20170313, end: 20170314
  23. RAMIPRIL. [Concomitant]
     Active Substance: RAMIPRIL
     Dates: start: 20170303
  24. UNASYN [Suspect]
     Active Substance: AMPICILLIN SODIUM\SULBACTAM SODIUM
     Route: 042
     Dates: start: 20170108, end: 20170108
  25. RAMIPRIL. [Concomitant]
     Active Substance: RAMIPRIL
     Dates: start: 20170118, end: 20170126
  26. ZANDIP [Concomitant]
     Dates: start: 2016, end: 20170104
  27. HYDROCHLOROTHIAZIDE, RAMIPRIL [Concomitant]
     Dosage: 2.5/12.5MG
     Dates: start: 2016, end: 20170117
  28. TRITTICO RETARD [Concomitant]
     Active Substance: TRAZODONE HYDROCHLORIDE
     Dates: start: 2016
  29. PRAXITEN [Concomitant]
     Active Substance: OXAZEPAM
     Dates: start: 20170315, end: 20170316
  30. PRAXITEN [Concomitant]
     Active Substance: OXAZEPAM
     Dates: start: 20170327
  31. LOVENOX [Concomitant]
     Active Substance: ENOXAPARIN SODIUM
     Dates: start: 20170118, end: 20170226
  32. ZANDIP [Concomitant]
     Dates: start: 20170105
  33. OLEOVIT D3 [Concomitant]
     Active Substance: CHOLECALCIFEROL
     Dosage: 4.2857 GTT DAILY;
     Dates: start: 20170313
  34. CYMBALTA [Concomitant]
     Active Substance: DULOXETINE HYDROCHLORIDE
     Dates: start: 20161228, end: 20161230
  35. CYMBALTA [Concomitant]
     Active Substance: DULOXETINE HYDROCHLORIDE
     Dates: start: 20170117, end: 20170215
  36. PRAXITEN [Concomitant]
     Active Substance: OXAZEPAM
     Dates: start: 20170103, end: 20170111
  37. LOVENOX [Concomitant]
     Active Substance: ENOXAPARIN SODIUM
     Dates: start: 20170108, end: 20170116

REACTIONS (2)
  - Type IV hypersensitivity reaction [Recovered/Resolved]
  - Urticaria [Recovered/Resolved]

NARRATIVE: CASE EVENT DATE: 20170203
